FAERS Safety Report 5818904-1 (Version None)
Quarter: 2008Q3

REPORT INFORMATION
  Report Type: 
  Country: None (occurrence: None)
  Receive Date: 20080721
  Receipt Date: 20080721
  Transmission Date: 20090109
  Serious: Yes (Other)
  Sender: FDA-Public Use
  Company Number: None

PATIENT
  Age: 34 Year
  Sex: Female
  Weight: 68.0396 kg

DRUGS (1)
  1. BUTALBITAL [Suspect]
     Indication: SINUS HEADACHE
     Dosage: 1 TABLET PRN PO
     Route: 048

REACTIONS (10)
  - MOUTH ULCERATION [None]
  - ORAL PAIN [None]
  - OROPHARYNGEAL BLISTERING [None]
  - PRURITUS [None]
  - SKIN DISCOLOURATION [None]
  - STEVENS-JOHNSON SYNDROME [None]
  - TONGUE ULCERATION [None]
  - URETHRAL DISORDER [None]
  - URTICARIA [None]
  - VULVOVAGINAL PRURITUS [None]
